FAERS Safety Report 7075375-8 (Version None)
Quarter: 2010Q4

REPORT INFORMATION
  Report Type: 
  Country: None (occurrence: None)
  Receive Date: 20101030
  Receipt Date: 20100819
  Transmission Date: 20110411
  Serious: No
  Sender: FDA-Public Use
  Company Number: US-WYE-H17127210

PATIENT
  Sex: Male

DRUGS (1)
  1. ALAVERT [Suspect]

REACTIONS (2)
  - CONDITION AGGRAVATED [None]
  - SNEEZING [None]
